FAERS Safety Report 7792696-1 (Version None)
Quarter: 2011Q4

REPORT INFORMATION
  Report Type: 
  Country: None (occurrence: None)
  Receive Date: 20111003
  Receipt Date: 20110921
  Transmission Date: 20120403
  Serious: Yes (Hospitalization)
  Sender: FDA-Public Use
  Company Number: JP-MERCK-1109USA02517

PATIENT
  Age: 64 Year
  Sex: Male

DRUGS (2)
  1. NESINA [Suspect]
     Route: 048
     Dates: start: 20110804, end: 20110815
  2. ZETIA [Suspect]
     Indication: HYPERCHOLESTEROLAEMIA
     Route: 048
     Dates: start: 20110804, end: 20110815

REACTIONS (1)
  - TOXIC SKIN ERUPTION [None]
